FAERS Safety Report 8156605-8 (Version None)
Quarter: 2012Q1

REPORT INFORMATION
  Report Type: 
  Country: None (occurrence: None)
  Receive Date: 20120216
  Receipt Date: 20120201
  Transmission Date: 20120608
  Serious: Yes (Other)
  Sender: FDA-Public Use
  Company Number: TPA2012A00103

PATIENT
  Age: 7 Decade
  Sex: Male

DRUGS (3)
  1. ULORIC [Suspect]
     Indication: GOUT
     Dosage: 40 MG, 1 IN 1 D, PER ORAL
     Route: 048
     Dates: end: 20111214
  2. ULORIC [Suspect]
     Indication: BLOOD URIC ACID INCREASED
     Dosage: 40 MG, 1 IN 1 D, PER ORAL
     Route: 048
     Dates: end: 20111214
  3. UNKNOWN MEDICATIONS (ALL OTHER THERAPEUTIC PRODUCTS) [Concomitant]

REACTIONS (2)
  - ANGIOEDEMA [None]
  - ANAPHYLACTIC SHOCK [None]
